FAERS Safety Report 15158660 (Version 2)
Quarter: 2018Q3

REPORT INFORMATION
  Report Type: Spontaneous
  Country: ZA (occurrence: ZA)
  Receive Date: 20180718
  Receipt Date: 20180726
  Transmission Date: 20181010
  Serious: Yes (Hospitalization)
  Sender: FDA-Public Use
  Company Number: ZA-PFIZER INC-2018288135

PATIENT
  Age: 64 Year
  Sex: Female

DRUGS (3)
  1. LOMANOR [Suspect]
     Active Substance: AMLODIPINE BESYLATE
     Dosage: UNK
  2. ASTHAVENT /00139501/ [Suspect]
     Active Substance: ALBUTEROL
     Indication: ASTHMA
     Dosage: UNK
  3. SYMBICORD [Suspect]
     Active Substance: BUDESONIDE\FORMOTEROL
     Indication: ASTHMA
     Dosage: UNK

REACTIONS (2)
  - Condition aggravated [Recovered/Resolved]
  - Asthma [Recovered/Resolved]
